FAERS Safety Report 4340000-3 (Version None)
Quarter: 2004Q2

REPORT INFORMATION
  Report Type: 
  Country: None (occurrence: None)
  Receive Date: 20040416
  Receipt Date: 20040407
  Transmission Date: 20050107
  Serious: Yes (Hospitalization)
  Sender: FDA-Public Use
  Company Number: ES-MERCK-0404ESP00016

PATIENT
  Age: 66 Year
  Sex: Male

DRUGS (5)
  1. BICALUTAMIDE [Concomitant]
     Indication: PROSTATE CANCER
     Route: 048
  2. NAPROXEN [Concomitant]
     Indication: PROSTATE CANCER
     Route: 048
  3. NOROXIN [Suspect]
     Indication: URINARY TRACT INFECTION
     Route: 048
  4. TRAMADOL HYDROCHLORIDE [Concomitant]
     Indication: PROSTATE CANCER
     Route: 048
  5. ZOLEDRONIC ACID [Concomitant]
     Indication: PROSTATE CANCER
     Route: 042

REACTIONS (1)
  - ACUTE FEBRILE NEUTROPHILIC DERMATOSIS [None]
